FAERS Safety Report 25517880 (Version 1)
Quarter: 2025Q3

REPORT INFORMATION
  Report Type: Spontaneous
  Country: US (occurrence: US)
  Receive Date: 20250704
  Receipt Date: 20250704
  Transmission Date: 20251021
  Serious: Yes (Other)
  Sender: AUROBINDO
  Company Number: US-MYLANLABS-2020M1051677

PATIENT
  Age: 36 Year
  Sex: Male

DRUGS (6)
  1. KETAMINE HYDROCHLORIDE [Suspect]
     Active Substance: KETAMINE HYDROCHLORIDE
     Indication: Pain in extremity
     Route: 061
  2. BACLOFEN [Suspect]
     Active Substance: BACLOFEN
     Indication: Pain in extremity
     Route: 061
  3. CLONIDINE [Suspect]
     Active Substance: CLONIDINE
     Indication: Pain in extremity
     Route: 061
  4. DICLOFENAC [Suspect]
     Active Substance: DICLOFENAC
     Indication: Pain in extremity
     Route: 061
  5. GABAPENTIN [Suspect]
     Active Substance: GABAPENTIN
     Indication: Pain in extremity
     Route: 061
  6. PRILOCAINE [Suspect]
     Active Substance: PRILOCAINE
     Indication: Pain in extremity
     Route: 061

REACTIONS (2)
  - Loss of consciousness [Unknown]
  - Agitation [Unknown]
